FAERS Safety Report 9939811 (Version 1)
Quarter: 2014Q1

REPORT INFORMATION
  Report Type: Report from Study
  Country: US (occurrence: US)
  Receive Date: 20140303
  Receipt Date: 20140303
  Transmission Date: 20141002
  Serious: No
  Sender: FDA-Public Use
  Company Number: US-ABBVIE-13P-163-1035932-00

PATIENT
  Age: 61 Year
  Sex: Female
  Weight: 93.98 kg

DRUGS (19)
  1. HUMIRA [Suspect]
     Indication: RHEUMATOID ARTHRITIS
     Dates: start: 20121219
  2. CYMBALTA [Concomitant]
     Indication: DEPRESSION
  3. CYMBALTA [Concomitant]
     Indication: RHEUMATOID ARTHRITIS
  4. DILTIAZEM [Concomitant]
     Indication: ATRIAL FIBRILLATION
     Dates: start: 201205
  5. COUMADIN [Concomitant]
     Indication: ATRIAL FIBRILLATION
  6. COUMADIN [Concomitant]
     Indication: EMBOLISM
  7. SINGULAIRE [Concomitant]
     Indication: ASTHMA
  8. PROTONIX [Concomitant]
     Indication: GASTROOESOPHAGEAL REFLUX DISEASE
  9. METHOTREXATE [Concomitant]
     Indication: RHEUMATOID ARTHRITIS
  10. VITAMIN D NOS [Concomitant]
     Indication: VITAMIN SUPPLEMENTATION
  11. CALTRATE D [Concomitant]
     Indication: SUPPLEMENTATION THERAPY
  12. MULTIVITAMIN [Concomitant]
     Indication: VITAMIN SUPPLEMENTATION
  13. FOLIC ACID [Concomitant]
     Indication: VITAMIN SUPPLEMENTATION
  14. LASIX [Concomitant]
     Indication: ILL-DEFINED DISORDER
  15. COLACE [Concomitant]
     Indication: CONSTIPATION
  16. SPIRIVA [Concomitant]
     Indication: ASTHMA
     Dosage: INHALER
  17. SYMBICORT [Concomitant]
     Indication: ASTHMA
     Dosage: INHALER
  18. VENTOLIN [Concomitant]
     Indication: ASTHMA
     Dosage: INHALER
  19. DUONEB [Concomitant]
     Indication: ASTHMA

REACTIONS (4)
  - Nasopharyngitis [Not Recovered/Not Resolved]
  - Cough [Not Recovered/Not Resolved]
  - Nasal congestion [Not Recovered/Not Resolved]
  - Productive cough [Not Recovered/Not Resolved]
